FAERS Safety Report 6256996-9 (Version None)
Quarter: 2009Q3

REPORT INFORMATION
  Report Type: 
  Country: None (occurrence: None)
  Receive Date: 20090706
  Receipt Date: 20090623
  Transmission Date: 20100115
  Serious: Yes (Other)
  Sender: FDA-Public Use
  Company Number: A0764583A

PATIENT
  Age: 49 Year
  Sex: Male
  Weight: 162.7 kg

DRUGS (8)
  1. AVANDIA [Suspect]
     Dosage: 4MG PER DAY
     Route: 048
     Dates: start: 20030101, end: 20050101
  2. METFORMIN HCL [Concomitant]
  3. GLUCOPHAGE [Concomitant]
  4. GLYBURIDE [Concomitant]
  5. TRILEPTAL [Concomitant]
  6. LIPITOR [Concomitant]
  7. XALATAN [Concomitant]
  8. PREVACID [Concomitant]

REACTIONS (1)
  - CEREBROVASCULAR ACCIDENT [None]
